FAERS Safety Report 17359944 (Version 3)
Quarter: 2020Q3

REPORT INFORMATION
  Report Type: Spontaneous
  Country: IL (occurrence: IL)
  Receive Date: 20200203
  Receipt Date: 20200723
  Transmission Date: 20201102
  Serious: Yes (Hospitalization, Other)
  Sender: FDA-Public Use
  Company Number: IL-ACTELION-A-CH2018-168102

PATIENT
  Age: 81 Year
  Sex: Female

DRUGS (16)
  1. VASODIP [Concomitant]
     Active Substance: LERCANIDIPINE HYDROCHLORIDE
  2. LIPITOR [Concomitant]
     Active Substance: ATORVASTATIN CALCIUM
  3. BISOPROLOL [Concomitant]
     Active Substance: BISOPROLOL
  4. OPSUMIT [Suspect]
     Active Substance: MACITENTAN
     Indication: PULMONARY ARTERIAL HYPERTENSION
     Dosage: 10 MG, OD
     Route: 048
     Dates: start: 20180208
  5. ASPIRIN. [Concomitant]
     Active Substance: ASPIRIN
  6. FUSID [Concomitant]
     Dosage: 80 MG, QD
     Route: 042
  7. FOLIC ACID. [Concomitant]
     Active Substance: FOLIC ACID
  8. PLAQUENIL [Concomitant]
     Active Substance: HYDROXYCHLOROQUINE SULFATE
  9. LOSARTAN. [Concomitant]
     Active Substance: LOSARTAN
  10. AMBIEN [Concomitant]
     Active Substance: ZOLPIDEM TARTRATE
  11. DISOTHIAZIDE [Concomitant]
     Active Substance: HYDROCHLOROTHIAZIDE
  12. TADALAFIL. [Concomitant]
     Active Substance: TADALAFIL
     Dosage: UNK
     Dates: start: 20180208, end: 20180219
  13. TRITACE [Concomitant]
     Active Substance: RAMIPRIL
  14. STUNARONE [Concomitant]
  15. ELATROLET [Concomitant]
     Active Substance: AMITRIPTYLINE HYDROCHLORIDE
  16. ALPHA D3 [Concomitant]
     Active Substance: ALFACALCIDOL

REACTIONS (12)
  - Asthenia [Not Recovered/Not Resolved]
  - Pulmonary oedema [Recovered/Resolved with Sequelae]
  - Peritoneal dialysis [Not Recovered/Not Resolved]
  - Thyroid disorder [Unknown]
  - Renal failure [Unknown]
  - Generalised oedema [Recovered/Resolved]
  - Hypotension [Not Recovered/Not Resolved]
  - Blood creatinine increased [Unknown]
  - Dyspnoea [Recovered/Resolved]
  - Oedema peripheral [Recovered/Resolved with Sequelae]
  - Viral infection [Recovered/Resolved]
  - Cough [Recovered/Resolved]

NARRATIVE: CASE EVENT DATE: 20180216
